FAERS Safety Report 8817916 (Version 1)
Quarter: 2012Q4

REPORT INFORMATION
  Report Type: 
  Country: TR (occurrence: TR)
  Receive Date: 20121004
  Receipt Date: 20121004
  Transmission Date: 20130627
  Serious: No
  Sender: FDA-Public Use
  Company Number: PHHY2008TR044377

PATIENT
  Sex: Male

DRUGS (1)
  1. STALEVO [Suspect]
     Indication: PARKINSON^S DISEASE

REACTIONS (3)
  - Dysstasia [Unknown]
  - Activities of daily living impaired [None]
  - Parkinson^s disease [None]
